FAERS Safety Report 13831027 (Version 2)
Quarter: 2017Q3

REPORT INFORMATION
  Report Type: Spontaneous
  Country: FR (occurrence: FR)
  Receive Date: 20170803
  Receipt Date: 20170925
  Transmission Date: 20171127
  Serious: Yes (Hospitalization)
  Sender: FDA-Public Use
  Company Number: FR-SA-2017SA130508

PATIENT
  Sex: Female

DRUGS (1)
  1. LOVENOX [Suspect]
     Active Substance: ENOXAPARIN SODIUM
     Route: 065
     Dates: start: 20150910, end: 20150911

REACTIONS (7)
  - Fat necrosis [Recovered/Resolved with Sequelae]
  - Impaired driving ability [Unknown]
  - Swelling [Unknown]
  - Pain in extremity [Unknown]
  - Insomnia [Unknown]
  - Unevaluable event [Unknown]
  - Injection site swelling [Unknown]

NARRATIVE: CASE EVENT DATE: 2015
